FAERS Safety Report 12558816 (Version 2)
Quarter: 2016Q4

REPORT INFORMATION
  Report Type: Spontaneous
  Country: US (occurrence: US)
  Receive Date: 20160715
  Receipt Date: 20161007
  Transmission Date: 20170207
  Serious: Yes (Other)
  Sender: FDA-Public Use
  Company Number: US-TEVA-675753ACC

PATIENT
  Age: 30 Year
  Sex: Female
  Weight: 62.65 kg

DRUGS (1)
  1. PARAGARD T 380A [Suspect]
     Active Substance: COPPER
     Indication: CONTRACEPTION
     Dates: start: 20150713, end: 20160125

REACTIONS (4)
  - Uterine perforation [Recovered/Resolved]
  - Complication associated with device [Recovered/Resolved]
  - Vulvovaginal pain [Recovered/Resolved]
  - Abdominal pain lower [Recovered/Resolved]

NARRATIVE: CASE EVENT DATE: 201510
